FAERS Safety Report 6539677-3 (Version None)
Quarter: 2010Q1

REPORT INFORMATION
  Report Type: 
  Country: None (occurrence: None)
  Receive Date: 20100115
  Receipt Date: 20100105
  Transmission Date: 20100710
  Serious: No
  Sender: FDA-Public Use
  Company Number: US-B.I. PHARMACEUTICALS,INC./RIDGEFIELD-2010-BP-00174BP

PATIENT
  Age: 63 Year
  Sex: Female

DRUGS (6)
  1. ZANTAC 75 [Suspect]
     Indication: DYSPEPSIA
     Dosage: 150 MG
     Route: 048
     Dates: start: 20091101
  2. GAS X [Concomitant]
     Indication: POSTOPERATIVE CARE
     Dates: start: 20091101, end: 20091201
  3. THEOPHYLLINE [Concomitant]
     Indication: ASTHMA
     Dates: start: 19970101
  4. ADVAIR DISKUS 100/50 [Concomitant]
     Indication: ASTHMA
     Dosage: 250 MCG
  5. LIPITOR [Concomitant]
     Indication: BLOOD CHOLESTEROL INCREASED
  6. AMLODIPINE [Concomitant]
     Indication: HYPERTENSION
     Dates: start: 19990101

REACTIONS (4)
  - COLD SWEAT [None]
  - DIZZINESS [None]
  - NASAL DISCOMFORT [None]
  - NAUSEA [None]
